FAERS Safety Report 20983281 (Version 1)
Quarter: 2022Q2

REPORT INFORMATION
  Report Type: Spontaneous
  Country: CN (occurrence: CN)
  Receive Date: 20220620
  Receipt Date: 20220620
  Transmission Date: 20220721
  Serious: Yes (Other)
  Sender: FDA-Public Use
  Company Number: CN-PFIZER INC-PV202200004975

PATIENT
  Age: 25 Year
  Sex: Female
  Weight: 78 kg

DRUGS (2)
  1. CARBOPROST TROMETHAMINE [Suspect]
     Active Substance: CARBOPROST TROMETHAMINE
     Indication: Postpartum haemorrhage
     Dosage: 1 ML, 1X/DAY
     Route: 030
     Dates: start: 20220518, end: 20220518
  2. OXYTOCIN [Concomitant]
     Active Substance: OXYTOCIN
     Indication: Postpartum disorder
     Dosage: 10.0 UNIT, 1X/DAY
     Route: 030
     Dates: start: 20220518, end: 20220518

REACTIONS (4)
  - Abdominal pain [Unknown]
  - Diarrhoea [Recovering/Resolving]
  - Tachycardia [Unknown]
  - Pyrexia [Unknown]

NARRATIVE: CASE EVENT DATE: 20220518
